FAERS Safety Report 13672678 (Version 2)
Quarter: 2017Q2

REPORT INFORMATION
  Report Type: Spontaneous
  Country: US (occurrence: US)
  Receive Date: 20170621
  Receipt Date: 20170623
  Transmission Date: 20170830
  Serious: No
  Sender: FDA-Public Use
  Company Number: US-ELI_LILLY_AND_COMPANY-US201706008367

PATIENT
  Age: 70 Year
  Sex: Male

DRUGS (6)
  1. OMEPRAZOLE. [Concomitant]
     Active Substance: OMEPRAZOLE
     Indication: GASTROOESOPHAGEAL REFLUX DISEASE
     Dosage: 40 MG, UNKNOWN
     Route: 065
  2. AXIRON [Suspect]
     Active Substance: TESTOSTERONE
     Dosage: UNK
     Route: 065
     Dates: start: 20170616
  3. AXIRON [Suspect]
     Active Substance: TESTOSTERONE
     Dosage: 60 MG, DAILY
     Route: 062
     Dates: end: 2016
  4. AXIRON [Suspect]
     Active Substance: TESTOSTERONE
     Indication: BLOOD TESTOSTERONE DECREASED
     Dosage: UNK
     Route: 065
     Dates: start: 201506, end: 201606
  5. BETIMOL [Concomitant]
     Active Substance: TIMOLOL
     Indication: GLAUCOMA
     Dosage: UNK UNK, UNKNOWN
     Route: 065
  6. CRESTOR [Concomitant]
     Active Substance: ROSUVASTATIN CALCIUM
     Indication: BLOOD CHOLESTEROL INCREASED
     Dosage: 10 MG, UNKNOWN
     Route: 065

REACTIONS (5)
  - Blood testosterone increased [Unknown]
  - Blood cholesterol increased [Unknown]
  - Malaise [Unknown]
  - Glucose tolerance impaired [Unknown]
  - Blood testosterone decreased [Unknown]

NARRATIVE: CASE EVENT DATE: 2016
